FAERS Safety Report 16846362 (Version 1)
Quarter: 2019Q3

REPORT INFORMATION
  Report Type: Spontaneous
  Country: JP (occurrence: JP)
  Receive Date: 20190924
  Receipt Date: 20190924
  Transmission Date: 20191005
  Serious: Yes (Death)
  Sender: FDA-Public Use
  Company Number: JP-HONG KONG KING-FRIEND INDUSTRIAL COMPANY-2019NKF00020

PATIENT
  Age: 66 Year
  Sex: Male

DRUGS (2)
  1. CISPLATIN. [Suspect]
     Active Substance: CISPLATIN
     Indication: SQUAMOUS CELL CARCINOMA
     Dosage: 80 MG/M2, (DAY 1)
     Route: 065
  2. GEMCITABINE. [Suspect]
     Active Substance: GEMCITABINE
     Indication: SQUAMOUS CELL CARCINOMA
     Dosage: 1000 MG/M2 (DAY 1 AND DAY 8)
     Route: 065

REACTIONS (1)
  - Thrombotic thrombocytopenic purpura [Fatal]
